FAERS Safety Report 9368979 (Version 1)
Quarter: 2013Q2

REPORT INFORMATION
  Report Type: Spontaneous
  Country: DE (occurrence: DE)
  Receive Date: 20130626
  Receipt Date: 20130626
  Transmission Date: 20140414
  Serious: Yes (Other)
  Sender: FDA-Public Use
  Company Number: PHHY2013DE062861

PATIENT
  Sex: Female

DRUGS (1)
  1. ZOMETA [Suspect]
     Dosage: 4 MG, UNK
     Route: 042

REACTIONS (2)
  - Paralysis [Unknown]
  - Lip swelling [Unknown]
